FAERS Safety Report 9290090 (Version 2)
Quarter: 2013Q3

REPORT INFORMATION
  Report Type: Report from Study
  Country: MX (occurrence: MX)
  Receive Date: 20130515
  Receipt Date: 20130827
  Transmission Date: 20140515
  Serious: Yes (Hospitalization, Other)
  Sender: FDA-Public Use
  Company Number: PHHY2013MX047453

PATIENT
  Age: 88 Year
  Sex: Female

DRUGS (10)
  1. ONBREZ [Suspect]
     Indication: CHRONIC OBSTRUCTIVE PULMONARY DISEASE
     Dosage: 150 UG, DAILY
     Dates: start: 20120531, end: 2012
  2. ONBREZ [Suspect]
     Dosage: 300 UG, UNK
     Dates: start: 2012
  3. ZELMAC [Suspect]
     Indication: BOWEL MOVEMENT IRREGULARITY
     Dosage: UNK UKN, UNK
     Dates: start: 20110830
  4. ATACAND [Concomitant]
     Indication: BLOOD PRESSURE
     Dosage: 1 DF, DAILY
     Dates: start: 2009
  5. NORVASC [Concomitant]
     Indication: BLOOD PRESSURE
     Dosage: 1 DF, DAILY
     Dates: start: 2007
  6. EUTIROX [Concomitant]
     Indication: THYROID DISORDER
     Dosage: 1 DF, DAILY
     Dates: start: 1993
  7. PANTOZOL [Concomitant]
     Indication: GASTRITIS PROPHYLAXIS
     Dosage: 2 DF, DAILY
     Dates: start: 201101
  8. PLANTABEN//PLANTAGO OVATA [Concomitant]
     Dosage: UNK UKN, UNK
     Dates: start: 201101
  9. OXYGEN [Concomitant]
     Dosage: UNK UKN, UNK
     Dates: start: 2010, end: 2013
  10. OXYGEN [Concomitant]
     Dosage: UNK UKN, UNK
     Dates: start: 2013

REACTIONS (6)
  - Intestinal obstruction [Not Recovered/Not Resolved]
  - Pneumonia [Recovered/Resolved]
  - Bronchial obstruction [Recovered/Resolved]
  - Aspiration bronchial [Recovered/Resolved]
  - Bronchitis [Recovered/Resolved]
  - Drug administered to patient of inappropriate age [Unknown]
